FAERS Safety Report 8300310-1 (Version None)
Quarter: 2012Q2

REPORT INFORMATION
  Report Type: 
  Country: None (occurrence: None)
  Receive Date: 20120420
  Receipt Date: 20120405
  Transmission Date: 20120825
  Serious: Yes (Hospitalization)
  Sender: FDA-Public Use
  Company Number: FR-CELGENEUS-056-21880-12040727

PATIENT
  Sex: Male
  Weight: 68 kg

DRUGS (7)
  1. VIDAZA [Suspect]
     Route: 065
     Dates: start: 20111101
  2. VIDAZA [Suspect]
     Route: 058
     Dates: start: 20110801
  3. REVLIMID [Suspect]
     Dosage: 5 MILLIGRAM
     Route: 048
     Dates: start: 20111220, end: 20120102
  4. REVLIMID [Suspect]
     Dosage: 10 MILLIGRAM
     Route: 048
     Dates: start: 20110704
  5. REVLIMID [Suspect]
     Dosage: 5 MILLIGRAM
     Route: 048
     Dates: start: 20110928
  6. VIDAZA [Suspect]
     Route: 058
     Dates: start: 20110606
  7. AUGMENTIN '125' [Concomitant]
     Indication: CORYNEBACTERIUM INFECTION
     Route: 048
     Dates: start: 20111101

REACTIONS (1)
  - FEBRILE BONE MARROW APLASIA [None]
